FAERS Safety Report 16090660 (Version 1)
Quarter: 2019Q1

REPORT INFORMATION
  Report Type: Spontaneous
  Country: JP (occurrence: JP)
  Receive Date: 20190319
  Receipt Date: 20190319
  Transmission Date: 20190418
  Serious: Yes (Life-Threatening, Other)
  Sender: FDA-Public Use
  Company Number: JP-ALLERGAN-1852434US

PATIENT
  Sex: Male

DRUGS (5)
  1. BOTOX [Suspect]
     Active Substance: ONABOTULINUMTOXINA
     Indication: MUSCLE RIGIDITY
     Dosage: 200 UNITS, SINGLE
     Route: 030
     Dates: start: 20151118, end: 20151118
  2. BOTOX [Suspect]
     Active Substance: ONABOTULINUMTOXINA
     Indication: MUSCLE CONTRACTURE
     Dosage: 100 UNITS, SINGLE
     Route: 030
     Dates: start: 20150810, end: 20150810
  3. NEUPRO [Concomitant]
     Active Substance: ROTIGOTINE
     Indication: PARKINSONISM
     Dosage: 9 MG, QD
     Dates: start: 20150128, end: 20160622
  4. LANSOPRAZOLE. [Concomitant]
     Active Substance: LANSOPRAZOLE
     Indication: PRODUCT USED FOR UNKNOWN INDICATION
     Dosage: 15 MG, QD
     Route: 065
     Dates: start: 20150204, end: 20160622
  5. MADOPAR [Concomitant]
     Active Substance: BENSERAZIDE HYDROCHLORIDE\LEVODOPA
     Indication: PARKINSONISM
     Dosage: 300 MG, QD
     Route: 065
     Dates: start: 2009, end: 20160622

REACTIONS (8)
  - Sputum retention [Unknown]
  - Pneumonia [Recovering/Resolving]
  - Product use in unapproved indication [Unknown]
  - Immunodeficiency [Unknown]
  - Pyrexia [Unknown]
  - Sputum increased [Unknown]
  - Asthenia [Unknown]
  - Sputum discoloured [Unknown]

NARRATIVE: CASE EVENT DATE: 20150928
